FAERS Safety Report 7632679-5 (Version None)
Quarter: 2011Q3

REPORT INFORMATION
  Report Type: 
  Country: None (occurrence: None)
  Receive Date: 20110725
  Receipt Date: 20101130
  Transmission Date: 20111222
  Serious: No
  Sender: FDA-Public Use
  Company Number: US-BRISTOL-MYERS SQUIBB COMPANY-15405749

PATIENT
  Age: 69 Year
  Sex: Male

DRUGS (5)
  1. COZAAR [Concomitant]
     Dosage: 50 MG .
  2. COUMADIN [Interacting]
     Dosage: 5MG:4DAYS,2.5 MG ;DURATION 3 DAYS.
  3. VANCOMYCIN HCL [Suspect]
     Indication: CLOSTRIDIUM DIFFICILE COLITIS
     Route: 048
     Dates: start: 20091211
  4. LIPITOR [Concomitant]
  5. QUESTRAN [Interacting]

REACTIONS (2)
  - INTERNATIONAL NORMALISED RATIO INCREASED [None]
  - DRUG INTERACTION [None]
